FAERS Safety Report 7319995-1 (Version None)
Quarter: 2011Q1

REPORT INFORMATION
  Report Type: 
  Country: None (occurrence: None)
  Receive Date: 20110228
  Receipt Date: 20110218
  Transmission Date: 20110831
  Serious: Yes (Other)
  Sender: FDA-Public Use
  Company Number: AR-PFIZER INC-2011038478

PATIENT
  Sex: Female

DRUGS (1)
  1. RAPAMUNE [Suspect]
     Dosage: UNK
     Dates: end: 20100501

REACTIONS (3)
  - FLUID RETENTION [None]
  - TOXICITY TO VARIOUS AGENTS [None]
  - SWELLING FACE [None]
